FAERS Safety Report 7634358-7 (Version None)
Quarter: 2011Q3

REPORT INFORMATION
  Report Type: 
  Country: None (occurrence: None)
  Receive Date: 20110725
  Receipt Date: 20110715
  Transmission Date: 20111222
  Serious: Yes (Hospitalization)
  Sender: FDA-Public Use
  Company Number: BR-ASTRAZENECA-2011SE42882

PATIENT
  Age: 49 Year
  Sex: Female
  Weight: 83 kg

DRUGS (7)
  1. OLMESARTAN MEDOXOMIL [Suspect]
     Dosage: 40/25 MG,
     Route: 048
     Dates: start: 20110101
  2. OLMESARTAN MEDOXOMIL [Suspect]
     Indication: HYPERTENSION
     Dosage: 20/12.5 MG, UNKNOWN DOSE ONCE DAILY
     Route: 048
     Dates: start: 20101201, end: 20110101
  3. ATENOLOL [Suspect]
     Route: 048
     Dates: end: 20101201
  4. LEVOTHYROXINE SODIUM [Concomitant]
     Indication: HYPERTHYROIDISM
  5. ATENOLOL [Suspect]
     Indication: HYPERTENSION
     Route: 048
  6. OMEPRAZOLE [Suspect]
     Indication: GASTRITIS PROPHYLAXIS
     Route: 048
  7. LOSARTAN POTASSIUM [Suspect]
     Indication: HYPERTENSION
     Route: 048

REACTIONS (8)
  - TACHYCARDIA [None]
  - OSTEOARTHRITIS [None]
  - BLOOD PRESSURE FLUCTUATION [None]
  - HYPERTHYROIDISM [None]
  - HYPERCHOLESTEROLAEMIA [None]
  - DRUG INEFFECTIVE [None]
  - HIP ARTHROPLASTY [None]
  - BLOOD PRESSURE INADEQUATELY CONTROLLED [None]
